FAERS Safety Report 6112524-X (Version None)
Quarter: 2009Q1

REPORT INFORMATION
  Report Type: 
  Country: None (occurrence: None)
  Receive Date: 20090312
  Receipt Date: 20090309
  Transmission Date: 20090719
  Serious: Yes (Hospitalization, Other)
  Sender: FDA-Public Use
  Company Number: BR-BAYER-200815929LA

PATIENT
  Age: 30 Year
  Sex: Female

DRUGS (7)
  1. BETAFERON [Suspect]
     Indication: MULTIPLE SCLEROSIS
     Route: 058
     Dates: start: 20080710, end: 20080101
  2. GABAPENTIN [Concomitant]
     Indication: HEADACHE
     Dosage: UNIT DOSE: 600 MG
     Route: 048
     Dates: start: 20080708
  3. GABAPENTIN [Concomitant]
     Dosage: UNIT DOSE: 600 MG
     Route: 048
     Dates: start: 20080710
  4. NEOZINE [Concomitant]
     Indication: SEDATIVE THERAPY
     Route: 048
     Dates: start: 20060101
  5. DIAZEPAM [Concomitant]
     Indication: DEPRESSION
     Dosage: TOTAL DAILY DOSE: 10 MG  UNIT DOSE: 10 MG
     Route: 048
     Dates: start: 20080715
  6. PULSE THERAPY [Concomitant]
     Indication: DRUG USE FOR UNKNOWN INDICATION
     Dates: start: 20080701, end: 20080701
  7. CHEMOTHERAPY [Concomitant]
     Indication: DRUG USE FOR UNKNOWN INDICATION
     Dates: start: 20080801, end: 20080801

REACTIONS (18)
  - ANOREXIA [None]
  - BACK PAIN [None]
  - DEPRESSION [None]
  - ERYTHEMA [None]
  - FATIGUE [None]
  - HEADACHE [None]
  - HOSPITALISATION [None]
  - INJECTION SITE HAEMORRHAGE [None]
  - INJECTION SITE RASH [None]
  - MALAISE [None]
  - NAUSEA [None]
  - NERVOUSNESS [None]
  - NEUROMYELITIS OPTICA [None]
  - PAIN [None]
  - PYREXIA [None]
  - SOMNOLENCE [None]
  - VISUAL ACUITY REDUCED [None]
  - VOMITING [None]
